FAERS Safety Report 7801719-2 (Version None)
Quarter: 2011Q4

REPORT INFORMATION
  Report Type: 
  Country: None (occurrence: None)
  Receive Date: 20111007
  Receipt Date: 20111004
  Transmission Date: 20120403
  Serious: Yes (Other)
  Sender: FDA-Public Use
  Company Number: US-PFIZER INC-2011237268

PATIENT
  Sex: Male
  Weight: 68 kg

DRUGS (1)
  1. CHAPSTICK CLASSIC [Suspect]
     Indication: CHAPPED LIPS
     Dosage: UNK
     Route: 065

REACTIONS (1)
  - DIABETES MELLITUS [None]
